FAERS Safety Report 9397442 (Version 1)
Quarter: 2013Q3

REPORT INFORMATION
  Report Type: Spontaneous
  Country: US (occurrence: None)
  Receive Date: 20130711
  Receipt Date: 20130711
  Transmission Date: 20140515
  Serious: Yes (Other)
  Sender: FDA-Public Use
  Company Number: None

PATIENT
  Age: 53 Year
  Sex: Female
  Weight: 55.34 kg

DRUGS (1)
  1. CEVIMELINE [Suspect]
     Indication: DRY MOUTH
     Route: 048
     Dates: start: 200910, end: 201105

REACTIONS (1)
  - Drug ineffective [None]
